FAERS Safety Report 10540850 (Version 1)
Quarter: 2014Q4

REPORT INFORMATION
  Report Type: Spontaneous
  Country: US (occurrence: None)
  Receive Date: 20141023
  Receipt Date: 20141023
  Transmission Date: 20150529
  Serious: Yes (Hospitalization)
  Sender: FDA-Public Use
  Company Number: None

PATIENT
  Age: 29 Year
  Sex: Male
  Weight: 97.07 kg

DRUGS (2)
  1. PAXIL [Suspect]
     Active Substance: PAROXETINE HYDROCHLORIDE
     Indication: POST-TRAUMATIC STRESS DISORDER
     Dosage: 1 PILL A DAY ONCE DAILY TAKEN BY MOUTH
     Route: 048
     Dates: start: 20141010, end: 20141021
  2. PAXIL [Suspect]
     Active Substance: PAROXETINE HYDROCHLORIDE
     Indication: ANXIETY
     Dosage: 1 PILL A DAY ONCE DAILY TAKEN BY MOUTH
     Route: 048
     Dates: start: 20141010, end: 20141021

REACTIONS (10)
  - Gait disturbance [None]
  - Constipation [None]
  - Musculoskeletal discomfort [None]
  - Tremor [None]
  - Restlessness [None]
  - Arthralgia [None]
  - Insomnia [None]
  - Balance disorder [None]
  - Hyperhidrosis [None]
  - Vision blurred [None]

NARRATIVE: CASE EVENT DATE: 20141020
